FAERS Safety Report 7993770-7 (Version None)
Quarter: 2011Q4

REPORT INFORMATION
  Report Type: 
  Country: None (occurrence: None)
  Receive Date: 20111220
  Receipt Date: 20111212
  Transmission Date: 20120403
  Serious: No
  Sender: FDA-Public Use
  Company Number: US-BIOGENIDEC-2011BI035292

PATIENT
  Age: 41 Year
  Sex: Female

DRUGS (2)
  1. TYSABRI [Suspect]
     Indication: MULTIPLE SCLEROSIS
     Route: 042
     Dates: start: 20110328, end: 20111110
  2. NEURONTIN [Concomitant]

REACTIONS (14)
  - HEADACHE [None]
  - SOMNOLENCE [None]
  - FATIGUE [None]
  - APHASIA [None]
  - MULTIPLE SCLEROSIS [None]
  - FEELING COLD [None]
  - BLOOD PRESSURE INCREASED [None]
  - COGNITIVE DISORDER [None]
  - ALTERED STATE OF CONSCIOUSNESS [None]
  - GAIT DISTURBANCE [None]
  - ROAD TRAFFIC ACCIDENT [None]
  - BLOOD GLUCOSE DECREASED [None]
  - DISORIENTATION [None]
  - HEAD INJURY [None]
